FAERS Safety Report 10354313 (Version 1)
Quarter: 2014Q3

REPORT INFORMATION
  Report Type: Spontaneous
  Country: US (occurrence: US)
  Receive Date: 20140731
  Receipt Date: 20140731
  Transmission Date: 20150326
  Serious: No
  Sender: FDA-Public Use
  Company Number: US-DRREDDYS-USA/USA/13/0035153

PATIENT
  Age: 2 Year
  Sex: Female

DRUGS (1)
  1. OMEPRAZOLE MAGNESIUM DELAYED RELEASE OTC [Suspect]
     Active Substance: OMEPRAZOLE MAGNESIUM
     Indication: PRODUCT USED FOR UNKNOWN INDICATION
     Route: 048
     Dates: start: 20131014

REACTIONS (4)
  - Product quality issue [Unknown]
  - No adverse event [Unknown]
  - Accidental exposure to product by child [Unknown]
  - Product container issue [Unknown]

NARRATIVE: CASE EVENT DATE: 20131014
